FAERS Safety Report 12336009 (Version 1)
Quarter: 2016Q2

REPORT INFORMATION
  Report Type: Spontaneous
  Country: US (occurrence: US)
  Receive Date: 20160505
  Receipt Date: 20160505
  Transmission Date: 20160815
  Serious: Yes (Death)
  Sender: FDA-Public Use
  Company Number: US-ROCHE-1752038

PATIENT
  Sex: Female

DRUGS (17)
  1. OMEPRAZOLE. [Concomitant]
     Active Substance: OMEPRAZOLE
     Route: 065
     Dates: start: 201505
  2. MUPIROCIN. [Concomitant]
     Active Substance: MUPIROCIN
     Route: 065
     Dates: start: 201508
  3. CELLCEPT [Suspect]
     Active Substance: MYCOPHENOLATE MOFETIL\MYCOPHENOLATE MOFETIL HYDROCHLORIDE
     Indication: PRODUCT USED FOR UNKNOWN INDICATION
     Route: 065
  4. MIDODRINE [Concomitant]
     Active Substance: MIDODRINE
     Route: 065
     Dates: start: 201508
  5. CIPROFLOXACIN. [Concomitant]
     Active Substance: CIPROFLOXACIN
     Route: 065
     Dates: start: 201508
  6. AZITHROMYCIN ANHYDROUS. [Concomitant]
     Active Substance: AZITHROMYCIN ANHYDROUS
     Route: 065
     Dates: start: 201505
  7. TRACLEER [Concomitant]
     Active Substance: BOSENTAN
     Indication: PULMONARY HYPERTENSION
     Route: 065
  8. VELETRI [Concomitant]
     Active Substance: EPOPROSTENOL
     Indication: PULMONARY HYPERTENSION
     Dosage: GIVEN VIA CATHETER IN INCREASING DOSAGE
     Route: 065
  9. IMODIUM [Concomitant]
     Active Substance: LOPERAMIDE HYDROCHLORIDE
     Route: 065
     Dates: start: 201503
  10. VORICONAZOLE. [Concomitant]
     Active Substance: VORICONAZOLE
     Route: 065
     Dates: start: 201505
  11. FUROSEMIDE. [Concomitant]
     Active Substance: FUROSEMIDE
     Route: 065
     Dates: start: 201502
  12. ZAROXOLYN [Concomitant]
     Active Substance: METOLAZONE
     Indication: OEDEMA
  13. PROAIR HFA [Concomitant]
     Active Substance: ALBUTEROL SULFATE
     Route: 065
     Dates: start: 201501
  14. DULERA [Concomitant]
     Active Substance: FORMOTEROL FUMARATE DIHYDRATE\MOMETASONE FUROATE
     Dosage: NEBULIZER, AS NEEDED
     Route: 065
     Dates: start: 201501
  15. REVATIO [Concomitant]
     Active Substance: SILDENAFIL CITRATE
     Indication: PULMONARY HYPERTENSION
     Route: 065
     Dates: start: 201502
  16. PREDNISONE. [Concomitant]
     Active Substance: PREDNISONE
     Route: 065
     Dates: start: 201504
  17. MIDODRINE [Concomitant]
     Active Substance: MIDODRINE
     Route: 065
     Dates: start: 201504

REACTIONS (1)
  - Death [Fatal]
